FAERS Safety Report 21898615 (Version 1)
Quarter: 2023Q1

REPORT INFORMATION
  Report Type: Spontaneous
  Country: US (occurrence: None)
  Receive Date: 20230121
  Receipt Date: 20230121
  Transmission Date: 20230418
  Serious: Yes (Disabling, Other)
  Sender: FDA-Public Use
  Company Number: None

PATIENT
  Age: 40 Year
  Sex: Female
  Weight: 60.75 kg

DRUGS (3)
  1. ZAFEMY [Suspect]
     Active Substance: ETHINYL ESTRADIOL\NORELGESTROMIN
     Indication: Uterine leiomyoma
     Dosage: OTHER FREQUENCY : ONE PATCH A WEEK.;?
     Route: 062
     Dates: start: 20221101, end: 20221227
  2. ADDERALL [Concomitant]
     Active Substance: AMPHETAMINE ASPARTATE\AMPHETAMINE SULFATE\DEXTROAMPHETAMINE SACCHARATE\DEXTROAMPHETAMINE SULFATE
  3. AMBIEN [Concomitant]
     Active Substance: ZOLPIDEM TARTRATE

REACTIONS (8)
  - Product substitution issue [None]
  - Therapeutic response changed [None]
  - Haemorrhage [None]
  - Vulvovaginal pain [None]
  - Uterine pain [None]
  - Cystitis [None]
  - Blood urine present [None]
  - Uterine leiomyoma [None]

NARRATIVE: CASE EVENT DATE: 20221101
